FAERS Safety Report 4779940-X (Version None)
Quarter: 2005Q3

REPORT INFORMATION
  Report Type: 
  Country: None (occurrence: None)
  Receive Date: 20050927
  Receipt Date: 20050916
  Transmission Date: 20060218
  Serious: Yes (Death)
  Sender: FDA-Public Use
  Company Number: US-GLAXOSMITHKLINE-A0575498A

PATIENT
  Age: 85 Year
  Sex: Male

DRUGS (6)
  1. ADVAIR DISKUS 100/50 [Suspect]
     Dosage: 1PUFF TWICE PER DAY
     Route: 055
     Dates: start: 20050706, end: 20050723
  2. COREG [Suspect]
     Route: 048
     Dates: start: 20050615, end: 20050723
  3. DIURETICS [Concomitant]
  4. COMBIVENT [Concomitant]
  5. NEBULIZER [Concomitant]
  6. ANTIBIOTICS [Concomitant]

REACTIONS (3)
  - CEREBROVASCULAR ACCIDENT [None]
  - DYSPHAGIA [None]
  - THERAPEUTIC RESPONSE UNEXPECTED [None]
